FAERS Safety Report 15968803 (Version 3)
Quarter: 2019Q1

REPORT INFORMATION
  Report Type: Spontaneous
  Country: US (occurrence: US)
  Receive Date: 20190215
  Receipt Date: 20190225
  Transmission Date: 20190418
  Serious: Yes (Other)
  Sender: FDA-Public Use
  Company Number: US-SHIRE-US201904390

PATIENT
  Sex: Male

DRUGS (2)
  1. ELAPRASE [Suspect]
     Active Substance: IDURSULFASE
     Dosage: 28 DOSAGE FORM
     Route: 042
     Dates: start: 20160217
  2. ELAPRASE [Suspect]
     Active Substance: IDURSULFASE
     Indication: MUCOPOLYSACCHARIDOSIS II
     Dosage: 39 MILLIGRAM, 1X/WEEK
     Route: 042
     Dates: start: 20080304

REACTIONS (3)
  - Arterial injury [Recovered/Resolved]
  - Haematoma [Recovering/Resolving]
  - Device leakage [Unknown]
